FAERS Safety Report 25600528 (Version 1)
Quarter: 2025Q3

REPORT INFORMATION
  Report Type: Spontaneous
  Country: US (occurrence: None)
  Receive Date: 20250723
  Receipt Date: 20250723
  Transmission Date: 20251020
  Serious: Yes (Death)
  Sender: FDA-CTU
  Company Number: None

PATIENT
  Age: 75 Year
  Sex: Female

DRUGS (1)
  1. PIRFENIDONE [Suspect]
     Active Substance: PIRFENIDONE
     Indication: Hypersensitivity pneumonitis
     Dosage: 267MG TID ORAL ?
     Route: 048
     Dates: start: 20231026, end: 20250625

REACTIONS (2)
  - Lung disorder [None]
  - Disease progression [None]

NARRATIVE: CASE EVENT DATE: 20250628
